FAERS Safety Report 5341469-8 (Version None)
Quarter: 2007Q2

REPORT INFORMATION
  Report Type: 
  Country: None (occurrence: None)
  Receive Date: 20070530
  Receipt Date: 20070516
  Transmission Date: 20071010
  Serious: Yes (Other)
  Sender: FDA-Public Use
  Company Number: GXKR2007GB04399

PATIENT
  Age: 88 Year
  Sex: Female

DRUGS (4)
  1. SERTRALINE [Suspect]
     Indication: DEPRESSION
     Dosage: 50 MG, QD, ORAL
     Route: 048
     Dates: start: 20070324, end: 20070427
  2. BENDROFLUAZIDE (BENDROFLUMETHIAZIDE) [Concomitant]
  3. LISINOPRIL [Concomitant]
  4. OMEPRAZOLE [Concomitant]

REACTIONS (1)
  - EPILEPSY [None]
